FAERS Safety Report 16197386 (Version 1)
Quarter: 2019Q2

REPORT INFORMATION
  Report Type: Spontaneous
  Country: US (occurrence: US)
  Receive Date: 20190413
  Receipt Date: 20190413
  Transmission Date: 20190711
  Serious: Yes (Hospitalization)
  Sender: FDA-Public Use
  Company Number: None

PATIENT
  Age: 56 Year
  Sex: Male
  Weight: 83.25 kg

DRUGS (7)
  1. ZARXIO [Suspect]
     Active Substance: FILGRASTIM-SNDZ
     Indication: CHRONIC LYMPHOCYTIC LEUKAEMIA
     Route: 058
     Dates: start: 20190213
  2. DOCUSATE [Concomitant]
     Active Substance: DOCUSATE
  3. ACETAMINOPHEN. [Concomitant]
     Active Substance: ACETAMINOPHEN
  4. MULTIVITAMIN [Concomitant]
     Active Substance: VITAMINS
  5. BUPROPION XL [Concomitant]
     Active Substance: BUPROPION
  6. FLUOXETINE [Concomitant]
     Active Substance: FLUOXETINE HYDROCHLORIDE
  7. NIFEREX [Concomitant]

REACTIONS (1)
  - Kidney infection [None]

NARRATIVE: CASE EVENT DATE: 20190412
